FAERS Safety Report 25588186 (Version 1)
Quarter: 2025Q3

REPORT INFORMATION
  Report Type: 
  Country: AU (occurrence: AU)
  Receive Date: 20250722
  Receipt Date: 20250722
  Transmission Date: 20251020
  Serious: Yes (Other)
  Sender: CELLTRION
  Company Number: AU-CELLTRION INC.-2025AU023747

PATIENT

DRUGS (3)
  1. INFLIXIMAB [Suspect]
     Active Substance: INFLIXIMAB
     Indication: Product used for unknown indication
  2. PENTASA [Concomitant]
     Active Substance: MESALAMINE
  3. AZATHIOPRINE [Concomitant]
     Active Substance: AZATHIOPRINE

REACTIONS (4)
  - Colitis ulcerative [Unknown]
  - Condition aggravated [Unknown]
  - Drug ineffective [Unknown]
  - Overdose [Unknown]
